FAERS Safety Report 4327228-3 (Version None)
Quarter: 2004Q1

REPORT INFORMATION
  Report Type: 
  Country: None (occurrence: None)
  Receive Date: 20040330
  Receipt Date: 20040311
  Transmission Date: 20041129
  Serious: Yes (Congenital Anomaly)
  Sender: FDA-Public Use
  Company Number: GB-BRISTOL-MYERS SQUIBB COMPANY-12534947

PATIENT
  Age: 1 Day
  Sex: Female
  Weight: 1 kg

DRUGS (4)
  1. CYCLOPHOSPHAMIDE [Suspect]
     Route: 064
  2. MEDRONE [Suspect]
     Route: 064
  3. PREDNISOLONE [Suspect]
     Route: 064
  4. CO-TRIMOXAZOLE [Suspect]
     Route: 064

REACTIONS (6)
  - CONGENITAL ANOMALY [None]
  - MATERNAL DRUGS AFFECTING FOETUS [None]
  - PREGNANCY [None]
  - PREMATURE BABY [None]
  - SINGLE FUNCTIONAL KIDNEY [None]
  - SOLITARY KIDNEY [None]
